FAERS Safety Report 8355598-8 (Version None)
Quarter: 2012Q2

REPORT INFORMATION
  Report Type: 
  Country: None (occurrence: None)
  Receive Date: 20120514
  Receipt Date: 20120508
  Transmission Date: 20120825
  Serious: Yes (Other)
  Sender: FDA-Public Use
  Company Number: FI-AMGEN-FINSP2012028385

PATIENT
  Sex: Female

DRUGS (3)
  1. XGEVA [Suspect]
     Indication: BREAST CANCER METASTATIC
     Dosage: UNK
     Dates: start: 20111201
  2. TAMOFEN [Concomitant]
     Dosage: UNK
  3. CALCIUM CARBONATE [Concomitant]
     Dosage: UNK

REACTIONS (1)
  - METASTASES TO BONE [None]
